FAERS Safety Report 8983534 (Version 1)
Quarter: 2012Q4

REPORT INFORMATION
  Report Type: 
  Country: US (occurrence: US)
  Receive Date: 20121224
  Receipt Date: 20121224
  Transmission Date: 20130627
  Serious: No
  Sender: FDA-Public Use
  Company Number: US-BIOGENIDEC-2012BI061975

PATIENT
  Age: 58 None
  Sex: Male

DRUGS (1)
  1. TYSABRI [Suspect]
     Indication: MULTIPLE SCLEROSIS
     Route: 042
     Dates: start: 20121128

REACTIONS (6)
  - Ocular hyperaemia [Recovered/Resolved]
  - Disturbance in attention [Not Recovered/Not Resolved]
  - Insomnia [Unknown]
  - Poor quality sleep [Unknown]
  - Fatigue [Not Recovered/Not Resolved]
  - Headache [Recovered/Resolved]
